FAERS Safety Report 6758840-X (Version None)
Quarter: 2010Q2

REPORT INFORMATION
  Report Type: 
  Country: None (occurrence: None)
  Receive Date: 20100603
  Receipt Date: 20100527
  Transmission Date: 20101027
  Serious: Yes (Hospitalization)
  Sender: FDA-Public Use
  Company Number: 2010-4

PATIENT
  Age: 30 Year
  Sex: Female

DRUGS (2)
  1. DAPSONE [Suspect]
     Indication: PNEUMOCYSTIS JIROVECI INFECTION
     Dosage: 100 MG / DAY 047
     Dates: start: 20100504, end: 20100517
  2. DAPSONE [Suspect]
     Indication: PROPHYLAXIS
     Dosage: 100 MG / DAY 047
     Dates: start: 20100504, end: 20100517

REACTIONS (2)
  - INFLUENZA LIKE ILLNESS [None]
  - STEVENS-JOHNSON SYNDROME [None]
